FAERS Safety Report 5270707-5 (Version None)
Quarter: 2007Q1

REPORT INFORMATION
  Report Type: 
  Country: None (occurrence: None)
  Receive Date: 20070321
  Receipt Date: 20070309
  Transmission Date: 20070707
  Serious: Yes (Other)
  Sender: FDA-Public Use
  Company Number: SE-JNJFOC-20060904542

PATIENT
  Sex: Female

DRUGS (10)
  1. REMICADE [Suspect]
     Route: 042
  2. REMICADE [Suspect]
     Indication: RHEUMATOID ARTHRITIS
     Route: 042
  3. METHOTREXATE [Concomitant]
     Route: 065
  4. MOBIC [Concomitant]
  5. CYTOTEC [Concomitant]
  6. ENALAPRIL MALEATE [Concomitant]
  7. ALVEDON [Concomitant]
  8. METHOTREXATE [Concomitant]
  9. FOLACIN [Concomitant]
  10. PREDNISOLONE [Concomitant]

REACTIONS (1)
  - PULMONARY TUBERCULOSIS [None]
